FAERS Safety Report 7872767-1 (Version None)
Quarter: 2011Q4

REPORT INFORMATION
  Report Type: 
  Country: None (occurrence: None)
  Receive Date: 20111030
  Receipt Date: 20110824
  Transmission Date: 20120403
  Serious: Yes (Death, Other)
  Sender: FDA-Public Use
  Company Number: PHHO2011JP14495

PATIENT
  Sex: Female
  Weight: 52 kg

DRUGS (13)
  1. DOCETAXEL [Suspect]
     Dosage: UNK
     Route: 042
     Dates: start: 20101020
  2. XELODA [Suspect]
     Dosage: UNK
     Route: 048
     Dates: start: 20101020
  3. SELBEX [Concomitant]
     Route: 048
  4. ZOMETA [Suspect]
     Indication: METASTASES TO BONE
     Dosage: UNK
  5. LANSOPRAZOLE [Concomitant]
     Dosage: UNK
     Route: 048
  6. LOXOPROFEN [Concomitant]
     Indication: CANCER PAIN
     Route: 048
  7. CINAL [Concomitant]
     Route: 048
  8. FEMARA [Suspect]
     Indication: BREAST CANCER
     Dosage: UNK
     Route: 048
     Dates: start: 20110317
  9. XELODA [Suspect]
     Indication: BREAST CANCER
     Dosage: 2400 MG, UNK
     Route: 048
     Dates: start: 20100830, end: 20100913
  10. CODEINE PHOSPHATE [Concomitant]
     Indication: CANCER PAIN
     Dosage: UNK
     Route: 048
     Dates: start: 20100830, end: 20100912
  11. CORTRIL [Concomitant]
     Route: 048
  12. DECADRON [Concomitant]
     Dosage: UNK
     Dates: start: 20100830, end: 20100830
  13. DOCETAXEL [Suspect]
     Indication: BREAST CANCER
     Dosage: UNK
     Route: 042

REACTIONS (3)
  - NEOPLASM PROGRESSION [None]
  - NEOPLASM MALIGNANT [None]
  - BONE MARROW FAILURE [None]
